FAERS Safety Report 23934634 (Version 1)
Quarter: 2024Q2

REPORT INFORMATION
  Report Type: Report from Study
  Country: US (occurrence: US)
  Receive Date: 20240603
  Receipt Date: 20240603
  Transmission Date: 20240716
  Serious: Yes (Other)
  Sender: FDA-Public Use
  Company Number: US-002147023-NVSC2024US114780

PATIENT
  Sex: Female

DRUGS (1)
  1. KESIMPTA [Suspect]
     Active Substance: OFATUMUMAB
     Indication: Product used for unknown indication
     Dosage: UNK
     Route: 065

REACTIONS (10)
  - Epilepsy [Unknown]
  - Somnolence [Unknown]
  - Fatigue [Unknown]
  - Asthenia [Unknown]
  - Anxiety [Unknown]
  - Crying [Unknown]
  - Hyperventilation [Unknown]
  - Joint dislocation [Unknown]
  - Tendon injury [Unknown]
  - Depression [Unknown]
